FAERS Safety Report 21809571 (Version 3)
Quarter: 2025Q2

REPORT INFORMATION
  Report Type: Report from Study
  Country: IN (occurrence: IN)
  Receive Date: 20230103
  Receipt Date: 20250410
  Transmission Date: 20250716
  Serious: Yes (Other)
  Sender: NOVARTIS
  Company Number: IN-002147023-NVSC2022IN277049

PATIENT
  Age: 56 Year
  Sex: Female

DRUGS (3)
  1. RIBOCICLIB [Suspect]
     Active Substance: RIBOCICLIB
     Indication: Breast cancer metastatic
     Dosage: 600 MG, QD
     Route: 065
     Dates: start: 20220422
  2. RIBOCICLIB [Suspect]
     Active Substance: RIBOCICLIB
     Indication: Breast cancer
     Dosage: 600 MG, BID
     Route: 048
  3. RIBOCICLIB [Suspect]
     Active Substance: RIBOCICLIB
     Dosage: 200 MG, BID, (3-0-3)
     Route: 065

REACTIONS (17)
  - Myocardial ischaemia [Recovering/Resolving]
  - Pneumonia [Recovering/Resolving]
  - Weight decreased [Recovering/Resolving]
  - Breast mass [Recovering/Resolving]
  - Skin ulcer [Recovering/Resolving]
  - Pleural effusion [Recovering/Resolving]
  - Fibrosis [Recovering/Resolving]
  - Hypertension [Recovering/Resolving]
  - Haemoptysis [Recovering/Resolving]
  - Dysphonia [Recovering/Resolving]
  - Dyspnoea exertional [Unknown]
  - Hepatitis B core antibody positive [Unknown]
  - Peripheral swelling [Recovering/Resolving]
  - Rash pruritic [Recovering/Resolving]
  - Decreased appetite [Recovering/Resolving]
  - Productive cough [Unknown]
  - Off label use [Unknown]

NARRATIVE: CASE EVENT DATE: 20221101
